FAERS Safety Report 4830789-9 (Version None)
Quarter: 2005Q4

REPORT INFORMATION
  Report Type: 
  Country: None (occurrence: None)
  Receive Date: 20051114
  Receipt Date: 20051026
  Transmission Date: 20060501
  Serious: Yes (Death, Life-Threatening, Hospitalization)
  Sender: FDA-Public Use
  Company Number: 8011625

PATIENT
  Age: 6 Year
  Sex: Male
  Weight: 18.6 kg

DRUGS (5)
  1. KEPPRA [Suspect]
     Indication: MYOCLONIC EPILEPSY
     Dosage: NI /D
     Dates: start: 20050525, end: 20050830
  2. TIMOX [Concomitant]
  3. PROPRANOLOL HYDROCHLORIDE [Concomitant]
  4. MELATONIN [Concomitant]
  5. STEROIDS [Concomitant]

REACTIONS (26)
  - ASCITES [None]
  - BLOOD LACTIC ACID INCREASED [None]
  - CHOLESTASIS [None]
  - CONDITION AGGRAVATED [None]
  - COORDINATION ABNORMAL [None]
  - CSF LACTATE INCREASED [None]
  - FAECAL INCONTINENCE [None]
  - GASTROENTERITIS [None]
  - HEADACHE [None]
  - HEPATIC ENZYME INCREASED [None]
  - HYPOKINESIA [None]
  - LIVER DISORDER [None]
  - MITOCHONDRIAL CYTOPATHY [None]
  - MULTI-ORGAN FAILURE [None]
  - MYOCLONIC EPILEPSY [None]
  - NUCLEAR MAGNETIC RESONANCE IMAGING BRAIN ABNORMAL [None]
  - PLEURAL EFFUSION [None]
  - PNEUMONIA [None]
  - PROTHROMBIN TIME PROLONGED [None]
  - PYREXIA [None]
  - RESPIRATORY FAILURE [None]
  - SPEECH DISORDER [None]
  - STATUS EPILEPTICUS [None]
  - URINARY INCONTINENCE [None]
  - VESSEL PUNCTURE SITE HAEMORRHAGE [None]
  - VOMITING [None]
